FAERS Safety Report 4423816-4 (Version None)
Quarter: 2004Q3

REPORT INFORMATION
  Report Type: 
  Country: None (occurrence: None)
  Receive Date: 20040714
  Receipt Date: 20040323
  Transmission Date: 20050211
  Serious: Yes (Other)
  Sender: FDA-Public Use
  Company Number: HQWYE172926MAR04

PATIENT
  Age: 55 Year
  Sex: Female
  Weight: 49.03 kg

DRUGS (3)
  1. ALAVERT [Suspect]
     Indication: EYE PRURITUS
     Dosage: 1 TABLET 1X PER 1 DAY, ORAL
     Route: 048
     Dates: start: 20040322, end: 20040323
  2. ALAVERT [Suspect]
     Indication: NASAL CONGESTION
     Dosage: 1 TABLET 1X PER 1 DAY, ORAL
     Route: 048
     Dates: start: 20040322, end: 20040323
  3. ALAVERT [Suspect]
     Indication: THROAT IRRITATION
     Dosage: 1 TABLET 1X PER 1 DAY, ORAL
     Route: 048
     Dates: start: 20040322, end: 20040323

REACTIONS (1)
  - NAUSEA [None]
